FAERS Safety Report 5466850-8 (Version None)
Quarter: 2007Q3

REPORT INFORMATION
  Report Type: 
  Country: None (occurrence: None)
  Receive Date: 20070920
  Receipt Date: 20070906
  Transmission Date: 20080115
  Serious: Yes (Disabling, Other)
  Sender: FDA-Public Use
  Company Number: POMP-10843

PATIENT
  Age: 23 Year
  Sex: Female
  Weight: 54 kg

DRUGS (1)
  1. MYOZYME [Suspect]
     Indication: GLYCOGEN STORAGE DISEASE TYPE II
     Dosage: 1100 MG 2X/W IV
     Route: 042
     Dates: start: 20060701, end: 20070330

REACTIONS (5)
  - ABASIA [None]
  - ASTHENIA [None]
  - DIZZINESS [None]
  - HYPERTENSION [None]
  - NO THERAPEUTIC RESPONSE [None]
